FAERS Safety Report 5143144-1 (Version None)
Quarter: 2006Q4

REPORT INFORMATION
  Report Type: 
  Country: None (occurrence: None)
  Receive Date: 20061031
  Receipt Date: 20061031
  Transmission Date: 20070319
  Serious: Yes (Hospitalization)
  Sender: FDA-Public Use
  Company Number: None

PATIENT
  Sex: Female
  Weight: 42 kg

DRUGS (2)
  1. CISPLATIN [Suspect]
     Dosage: 71 MG
  2. NAVELBINE DITARTRATE   (VINORELBINE [Suspect]
     Dosage: 42 MG

REACTIONS (1)
  - RENAL FAILURE ACUTE [None]
